FAERS Safety Report 7465566-6 (Version None)
Quarter: 2011Q1

REPORT INFORMATION
  Report Type: 
  Country: None (occurrence: None)
  Receive Date: 20110302
  Receipt Date: 20100805
  Transmission Date: 20110831
  Serious: Yes (Other)
  Sender: FDA-Public Use
  Company Number: 163-21880-10080592

PATIENT
  Age: 88 Year
  Sex: Male

DRUGS (11)
  1. REVLIMID [Suspect]
     Indication: MYELODYSPLASTIC SYNDROME
     Dosage: 10 MG, DAILY X 21 DAYS, PO, 5-10 MG DAILY X 21 DAYS, PO
     Route: 048
     Dates: start: 20071001
  2. REVLIMID [Suspect]
     Indication: MYELODYSPLASTIC SYNDROME
     Dosage: 10 MG, DAILY X 21 DAYS, PO, 5-10 MG DAILY X 21 DAYS, PO
     Route: 048
     Dates: start: 20091201, end: 20100426
  3. TAMSULOSIN HCL [Concomitant]
  4. ASPIRIN [Concomitant]
  5. AVANDAMET [Concomitant]
  6. METOPROLOL TARTRATE [Concomitant]
  7. LISINOPRIL [Concomitant]
  8. AMLODIPINE [Concomitant]
  9. FUROSEMIDE [Concomitant]
  10. ATORVASTATIN [Concomitant]
  11. MULTIVITAMIN [Concomitant]

REACTIONS (3)
  - GENERAL PHYSICAL HEALTH DETERIORATION [None]
  - FULL BLOOD COUNT DECREASED [None]
  - MALAISE [None]
